FAERS Safety Report 19722295 (Version 1)
Quarter: 2021Q3

REPORT INFORMATION
  Report Type: Report from Study
  Country: BG (occurrence: BG)
  Receive Date: 20210819
  Receipt Date: 20210819
  Transmission Date: 20211014
  Serious: Yes (Hospitalization)
  Sender: FDA-Public Use
  Company Number: BG-MYLANLABS-2021M1053414

PATIENT
  Age: 73 Year
  Sex: Female
  Weight: 59 kg

DRUGS (16)
  1. METRONIDAZOLE. [Concomitant]
     Active Substance: METRONIDAZOLE
     Indication: INGUINAL HERNIA
     Dosage: ONGOING = NOT CHECKED
     Dates: start: 20190211, end: 20190213
  2. BUPRENORPHINE                      /00444002/ [Concomitant]
     Active Substance: BUPRENORPHINE HYDROCHLORIDE
     Indication: PAIN
     Dosage: UNK
     Dates: start: 20190305
  3. TRASTUZUMAB. [Suspect]
     Active Substance: TRASTUZUMAB
     Indication: HER2 POSITIVE BREAST CANCER
     Dosage: 300 MG (ON 11/FEB/2019, RECEIVED MOST RECENT DOSE)
     Route: 041
     Dates: start: 20180720
  4. CAPECITABINE. [Suspect]
     Active Substance: CAPECITABINE
     Indication: HER2 POSITIVE BREAST CANCER
     Dosage: 2500 MG, QD (ON 11/FEB/2019, RECEIVED MOST RECENT DOSE)
     Route: 048
     Dates: start: 20181213
  5. MANITOL [Concomitant]
     Active Substance: MANNITOL
     Indication: PAIN
     Dosage: UNK
     Dates: start: 20190305, end: 20190315
  6. OLSART [Concomitant]
     Dosage: UNK
     Dates: start: 20140615
  7. DEGAN [Concomitant]
     Active Substance: METOCLOPRAMIDE HYDROCHLORIDE
     Indication: PAIN
     Dosage: UNK
     Dates: start: 20190305, end: 20190315
  8. DEXAMETHASONE. [Concomitant]
     Active Substance: DEXAMETHASONE
     Indication: PAIN
     Dosage: ONGOING = NOT CHECKED
     Dates: end: 20190315
  9. TRAMADOL. [Concomitant]
     Active Substance: TRAMADOL
     Dosage: ONGOING = NOT CHECKED
     Dates: start: 20180405, end: 20190305
  10. ASPIRIN                            /00002701/ [Concomitant]
     Active Substance: ASPIRIN
     Dosage: ONGOING = CHECKED
     Dates: start: 20140615
  11. DOCETAXEL. [Suspect]
     Active Substance: DOCETAXEL
     Indication: HER2 POSITIVE BREAST CANCER
     Dosage: 80 MG 4 WEEKS (ON 14/NOV/2018, RECEIVED MOST RECENT DOSE)
     Route: 042
     Dates: start: 20180720
  12. FRAXIPARINE [Concomitant]
     Active Substance: NADROPARIN CALCIUM
     Indication: INGUINAL HERNIA
     Dosage: UNK
     Dates: start: 20190211, end: 20190213
  13. DEXKETOPROFEN [Concomitant]
     Active Substance: DEXKETOPROFEN
     Indication: PAIN
     Dosage: UNK
     Dates: start: 20190305, end: 20190315
  14. MORFIN                             /00036301/ [Concomitant]
     Active Substance: MORPHINE SULFATE
     Indication: PAIN
     Dosage: ONGOING = NOT CHECKED
     Dates: start: 20190305, end: 20190315
  15. NEURONTIN [Concomitant]
     Active Substance: GABAPENTIN
     Indication: PAIN
     Dosage: ONGOING = NOT CHECKED
     Dates: start: 20190305, end: 20190315
  16. PREDNISOLONE. [Concomitant]
     Active Substance: PREDNISOLONE
     Dosage: ONGOING = CHECKED
     Dates: start: 20000615

REACTIONS (1)
  - Inguinal hernia [Recovered/Resolved]

NARRATIVE: CASE EVENT DATE: 20190211
